FAERS Safety Report 6853550-2 (Version None)
Quarter: 2010Q3

REPORT INFORMATION
  Report Type: 
  Country: None (occurrence: None)
  Receive Date: 20100717
  Receipt Date: 20071212
  Transmission Date: 20110219
  Serious: No
  Sender: FDA-Public Use
  Company Number: US-PFIZER INC-2007106284

PATIENT
  Sex: Male
  Weight: 84.09 kg

DRUGS (4)
  1. CHANTIX [Suspect]
     Indication: SMOKING CESSATION THERAPY
     Dates: start: 20070415
  2. HYPERICUM PERFORATUM [Concomitant]
  3. PSEUDOEPHEDRINE [Concomitant]
     Indication: SINUS DISORDER
  4. ALBUTEROL [Concomitant]
     Indication: CHEST DISCOMFORT

REACTIONS (4)
  - AGITATION [None]
  - IRRITABILITY [None]
  - MUSCLE TWITCHING [None]
  - ROSACEA [None]
